FAERS Safety Report 6265968-X (Version None)
Quarter: 2009Q3

REPORT INFORMATION
  Report Type: 
  Country: None (occurrence: None)
  Receive Date: 20090709
  Receipt Date: 20090709
  Transmission Date: 20100115
  Serious: Yes (Hospitalization)
  Sender: FDA-Public Use
  Company Number: None

PATIENT
  Age: 74 Year
  Sex: Female
  Weight: 33 kg

DRUGS (10)
  1. WARFARIN SODIUM [Suspect]
     Indication: DEEP VEIN THROMBOSIS
     Dosage: 2.5MG DAILY PO CHRONIC
     Route: 048
  2. ALBUTEROL [Concomitant]
  3. AMBIEN [Concomitant]
  4. LACTULOSE [Concomitant]
  5. MEGACE [Concomitant]
  6. M.V.I. [Concomitant]
  7. SOTALOL [Concomitant]
  8. TYLENOL (CAPLET) [Concomitant]
  9. WARFARIN SODIUM [Concomitant]
  10. ZOLOFT [Concomitant]

REACTIONS (3)
  - CARDIO-RESPIRATORY ARREST [None]
  - INTERNATIONAL NORMALISED RATIO INCREASED [None]
  - LOWER GASTROINTESTINAL HAEMORRHAGE [None]
